FAERS Safety Report 24361383 (Version 1)
Quarter: 2024Q3

REPORT INFORMATION
  Report Type: Spontaneous
  Country: US (occurrence: US)
  Receive Date: 20240925
  Receipt Date: 20240925
  Transmission Date: 20241017
  Serious: Yes (Hospitalization)
  Sender: AMGEN
  Company Number: US-AMGEN-USASP2024188389

PATIENT
  Age: 47 Year
  Sex: Female

DRUGS (6)
  1. IVABRADINE [Suspect]
     Active Substance: IVABRADINE
     Indication: Heart failure with reduced ejection fraction
     Dosage: 5 MILLIGRAM, BID
     Route: 065
  2. MILRINONE [Concomitant]
     Active Substance: MILRINONE
     Dosage: UNK, 0.375 MICROGRAM/KILOGRAM/MIN
  3. SACUBITRIL [Concomitant]
     Active Substance: SACUBITRIL
     Dosage: UNK
  4. VALSARTAN [Concomitant]
     Active Substance: VALSARTAN
     Dosage: UNK
  5. SPIRONOLACTONE [Concomitant]
     Active Substance: SPIRONOLACTONE
     Dosage: UNK
  6. EMPAGLIFLOZIN [Concomitant]
     Active Substance: EMPAGLIFLOZIN
     Dosage: UNK

REACTIONS (1)
  - Atrial fibrillation [Recovering/Resolving]
